FAERS Safety Report 13870308 (Version 1)
Quarter: 2017Q3

REPORT INFORMATION
  Report Type: Spontaneous
  Country: US (occurrence: US)
  Receive Date: 20170815
  Receipt Date: 20170815
  Transmission Date: 20171127
  Serious: No
  Sender: FDA-Public Use
  Company Number: US-009507513-1708USA002969

PATIENT
  Age: 26 Year
  Sex: Female
  Weight: 63.49 kg

DRUGS (1)
  1. NEXPLANON [Suspect]
     Active Substance: ETONOGESTREL
     Indication: CONTRACEPTION
     Dosage: 1 IMPLANT IN THE LEFT ARM, EVERY 3 YEARS
     Route: 059
     Dates: start: 20170125

REACTIONS (15)
  - Malaise [Unknown]
  - Gastric disorder [Unknown]
  - Dehydration [Unknown]
  - Uterine pain [Unknown]
  - Weight decreased [Unknown]
  - Abdominal pain [Unknown]
  - Feeding disorder [Unknown]
  - Musculoskeletal chest pain [Unknown]
  - Head discomfort [Unknown]
  - Pain [Unknown]
  - Dysstasia [Unknown]
  - Muscle spasms [Unknown]
  - Fatigue [Unknown]
  - Asthenia [Unknown]
  - Menorrhagia [Unknown]

NARRATIVE: CASE EVENT DATE: 2017
